FAERS Safety Report 22019874 (Version 3)
Quarter: 2023Q1

REPORT INFORMATION
  Report Type: Spontaneous
  Country: US (occurrence: None)
  Receive Date: 20230222
  Receipt Date: 20230309
  Transmission Date: 20230418
  Serious: Yes (Hospitalization, Congenital Anomaly, Other)
  Sender: FDA-Public Use
  Company Number: US-ROCHE-3283448

PATIENT
  Age: 6 Month
  Sex: Female
  Weight: 8.8 kg

DRUGS (2)
  1. EVRYSDI [Suspect]
     Active Substance: RISDIPLAM
     Indication: Spinal muscular atrophy
     Route: 064
     Dates: start: 20220621
  2. SYNAGIS [Concomitant]
     Active Substance: PALIVIZUMAB
     Route: 030
     Dates: start: 202210

REACTIONS (7)
  - Eye movement disorder [Unknown]
  - Oculogyric crisis [Unknown]
  - Optic nerve hypoplasia [Not Recovered/Not Resolved]
  - Somnolence [Recovered/Resolved]
  - Weight gain poor [Recovered/Resolved]
  - Motor dysfunction [Recovered/Resolved]
  - Lethargy [Recovered/Resolved]

NARRATIVE: CASE EVENT DATE: 20220810
